FAERS Safety Report 10818457 (Version 1)
Quarter: 2015Q1

REPORT INFORMATION
  Report Type: Spontaneous
  Country: GB (occurrence: GB)
  Receive Date: 20150218
  Receipt Date: 20150218
  Transmission Date: 20150721
  Serious: Yes (Other)
  Sender: FDA-Public Use
  Company Number: PHHY2015GB016383

PATIENT
  Age: 22 Year
  Sex: Male

DRUGS (4)
  1. ISONIAZID. [Suspect]
     Active Substance: ISONIAZID
     Indication: BONE TUBERCULOSIS
     Route: 048
  2. RIFAMPICIN [Suspect]
     Active Substance: RIFAMPIN
     Indication: BONE TUBERCULOSIS
     Route: 048
  3. ETHAMBUTOL [Suspect]
     Active Substance: ETHAMBUTOL HYDROCHLORIDE
     Indication: BONE TUBERCULOSIS
     Route: 048
  4. PYRAZINAMIDE. [Concomitant]
     Active Substance: PYRAZINAMIDE
     Indication: BONE TUBERCULOSIS
     Route: 048

REACTIONS (2)
  - Pathogen resistance [Unknown]
  - Meningitis tuberculous [Unknown]
